FAERS Safety Report 6588379-6 (Version None)
Quarter: 2010Q1

REPORT INFORMATION
  Report Type: 
  Country: None (occurrence: None)
  Receive Date: 20100218
  Receipt Date: 20100209
  Transmission Date: 20100710
  Serious: Yes (Death)
  Sender: FDA-Public Use
  Company Number: JP-PFIZER INC-2010012004

PATIENT
  Age: 46 Year
  Sex: Female

DRUGS (10)
  1. LINEZOLID [Suspect]
     Indication: SEPSIS
     Dosage: 600 MG, 2X/DAY
     Route: 042
     Dates: start: 20070911, end: 20070914
  2. FENTANEST [Concomitant]
     Route: 042
     Dates: end: 20070914
  3. MIDAZOLAM HCL [Concomitant]
     Route: 042
     Dates: end: 20070914
  4. HUMULIN R [Concomitant]
     Route: 042
     Dates: end: 20070914
  5. ELASPOL [Concomitant]
     Route: 042
     Dates: end: 20070914
  6. NORADRENALINE [Concomitant]
     Route: 042
     Dates: end: 20070914
  7. TIENAM [Concomitant]
     Route: 042
     Dates: end: 20070914
  8. MICAFUNGIN SODIUM [Concomitant]
     Route: 042
     Dates: end: 20070914
  9. GLOVENIN [Concomitant]
     Route: 042
     Dates: end: 20070912
  10. ANTITHROMBIN III HUMAN [Concomitant]
     Route: 042
     Dates: start: 20070912, end: 20070914

REACTIONS (1)
  - DISSEMINATED INTRAVASCULAR COAGULATION [None]
